FAERS Safety Report 17549547 (Version 1)
Quarter: 2020Q1

REPORT INFORMATION
  Report Type: Spontaneous
  Country: US (occurrence: US)
  Receive Date: 20200305
  Receipt Date: 20200305
  Transmission Date: 20200409
  Serious: Yes (Disabling, Other)
  Sender: FDA-Public Use
  Company Number: None

PATIENT
  Age: 64 Year
  Sex: Female
  Weight: 46.27 kg

DRUGS (1)
  1. PROLIA [Suspect]
     Active Substance: DENOSUMAB
     Indication: OSTEOPOROSIS
     Dosage: ?          QUANTITY:1 INJECTION EVERY ;OTHER ROUTE:ONE TIME INFUSION?
     Dates: start: 20170801, end: 20170801

REACTIONS (22)
  - Muscular weakness [None]
  - Asthenia [None]
  - Arthralgia [None]
  - Intervertebral disc degeneration [None]
  - Impaired work ability [None]
  - Anorectal disorder [None]
  - White blood cell count increased [None]
  - Fatigue [None]
  - Functional gastrointestinal disorder [None]
  - Pain [None]
  - Pain in extremity [None]
  - Dyspepsia [None]
  - Gait inability [None]
  - Muscle rupture [None]
  - Red blood cell count abnormal [None]
  - Intervertebral disc annular tear [None]
  - Bladder dysfunction [None]
  - Blood urine present [None]
  - Liver function test increased [None]
  - Product prescribing issue [None]
  - Autoimmune disorder [None]
  - Back pain [None]

NARRATIVE: CASE EVENT DATE: 20170801
